FAERS Safety Report 9559835 (Version 1)
Quarter: 2013Q3

REPORT INFORMATION
  Report Type: Spontaneous
  Country: US (occurrence: None)
  Receive Date: 20130906
  Receipt Date: 20130906
  Transmission Date: 20140515
  Serious: Yes (Other)
  Sender: FDA-Public Use
  Company Number: 163-POMAL-13073705

PATIENT
  Age: 58 Year
  Sex: Female
  Weight: 64.86 kg

DRUGS (8)
  1. POMALYST [Suspect]
     Indication: PLASMA CELL MYELOMA
     Route: 048
     Dates: start: 20130625
  2. DEXAMETHASONE (DEXAMETHASONE) [Concomitant]
  3. ZOMETA (ZOLEDRONIC ACID) [Concomitant]
  4. PROCRIT (ERYTHROPOIETIN) [Concomitant]
  5. VELCADE (BORTEZOMIB) [Concomitant]
  6. AMLODIPINE (AMLODIPINE) [Concomitant]
  7. ASPIRIN (ACETYLSALICYLIC ACID) [Concomitant]
  8. ARIMIDEX (ANASTROZOLE) [Concomitant]

REACTIONS (1)
  - Thrombocytopenia [None]
